FAERS Safety Report 22001434 (Version 3)
Quarter: 2023Q1

REPORT INFORMATION
  Report Type: Report from Study
  Country: FR (occurrence: FR)
  Receive Date: 20230216
  Receipt Date: 20230301
  Transmission Date: 20230417
  Serious: Yes (Other)
  Sender: FDA-Public Use
  Company Number: FR-GILEAD-2022-0596515

PATIENT
  Sex: Female
  Weight: 75 kg

DRUGS (15)
  1. SACITUZUMAB GOVITECAN-HZIY [Suspect]
     Active Substance: SACITUZUMAB GOVITECAN-HZIY
     Indication: Triple negative breast cancer
     Dosage: 7 MG/KG, CYCLE 1, DAY 1
     Route: 042
     Dates: start: 20220414
  2. SACITUZUMAB GOVITECAN-HZIY [Suspect]
     Active Substance: SACITUZUMAB GOVITECAN-HZIY
     Dosage: 7 MG/KG, CYCLE 2, DAY 1
     Route: 042
     Dates: start: 20220510, end: 20220510
  3. SACITUZUMAB GOVITECAN-HZIY [Suspect]
     Active Substance: SACITUZUMAB GOVITECAN-HZIY
     Dosage: 8 MG/KG, CYCLE 2, DAY 8
     Route: 042
     Dates: start: 20220517, end: 20220517
  4. SACITUZUMAB GOVITECAN-HZIY [Suspect]
     Active Substance: SACITUZUMAB GOVITECAN-HZIY
     Dosage: 7 MG/KG, CYCLE 3, DAY 1
     Route: 042
     Dates: start: 20220608, end: 20220608
  5. SACITUZUMAB GOVITECAN-HZIY [Suspect]
     Active Substance: SACITUZUMAB GOVITECAN-HZIY
     Dosage: 8.5 MG/KG, CYCLE 3, DAY 8
     Route: 042
     Dates: start: 20220614, end: 20220614
  6. SACITUZUMAB GOVITECAN-HZIY [Suspect]
     Active Substance: SACITUZUMAB GOVITECAN-HZIY
     Dosage: 10 MG/KG, CYCLE 4, DAY 1, 8
     Route: 042
     Dates: start: 20220705, end: 20220712
  7. SACITUZUMAB GOVITECAN-HZIY [Suspect]
     Active Substance: SACITUZUMAB GOVITECAN-HZIY
     Dosage: 10 MG/KG, CYCLE 5, DAY 1, 8
     Route: 042
     Dates: start: 20220726, end: 20220802
  8. SACITUZUMAB GOVITECAN-HZIY [Suspect]
     Active Substance: SACITUZUMAB GOVITECAN-HZIY
     Dosage: 10 MG/KG ON C6D1 AND C6D8
     Route: 042
     Dates: start: 20220906, end: 20220913
  9. SACITUZUMAB GOVITECAN-HZIY [Suspect]
     Active Substance: SACITUZUMAB GOVITECAN-HZIY
     Dosage: 10 MG/KG ON C7D1 AND C7D8
     Route: 042
     Dates: start: 20220927, end: 20221004
  10. SACITUZUMAB GOVITECAN-HZIY [Suspect]
     Active Substance: SACITUZUMAB GOVITECAN-HZIY
     Dosage: 10 MG/KG ON C8D1 AND C8D8
     Route: 042
     Dates: start: 20221018, end: 20221025
  11. SACITUZUMAB GOVITECAN-HZIY [Suspect]
     Active Substance: SACITUZUMAB GOVITECAN-HZIY
     Dosage: 10 MG/KG ON C9D1
     Route: 042
     Dates: start: 20221108, end: 20221108
  12. SACITUZUMAB GOVITECAN-HZIY [Suspect]
     Active Substance: SACITUZUMAB GOVITECAN-HZIY
     Dosage: 10 MG/KG ON C9D1 AND C9D8
     Route: 042
     Dates: start: 20221129, end: 20221206
  13. SACITUZUMAB GOVITECAN-HZIY [Suspect]
     Active Substance: SACITUZUMAB GOVITECAN-HZIY
     Dosage: 10 MG/KG ON C11D1
     Route: 042
     Dates: start: 20221220
  14. SACITUZUMAB GOVITECAN-HZIY [Suspect]
     Active Substance: SACITUZUMAB GOVITECAN-HZIY
     Dosage: 10 MG/KG ON C12D1 AND C12D8
     Route: 042
     Dates: start: 20230103, end: 20230110
  15. SACITUZUMAB GOVITECAN-HZIY [Suspect]
     Active Substance: SACITUZUMAB GOVITECAN-HZIY
     Dosage: 10 MG/KG ON C13D1 AND C13D8
     Route: 042
     Dates: start: 20230124, end: 20230207

REACTIONS (5)
  - Coronary artery bypass [Unknown]
  - Off label use [Unknown]
  - Device malfunction [Recovered/Resolved]
  - Off label use [Unknown]
  - Off label use [Unknown]
